FAERS Safety Report 16091163 (Version 1)
Quarter: 2019Q1

REPORT INFORMATION
  Report Type: Spontaneous
  Country: US (occurrence: US)
  Receive Date: 20190319
  Receipt Date: 20190319
  Transmission Date: 20190418
  Serious: No
  Sender: FDA-Public Use
  Company Number: US-BEH-2019100511

PATIENT
  Age: 60 Year
  Sex: Female

DRUGS (1)
  1. HIZENTRA [Suspect]
     Active Substance: HUMAN IMMUNOGLOBULIN G
     Indication: HUMORAL IMMUNE DEFECT
     Dosage: 8 G, QW
     Route: 058
     Dates: start: 20181207

REACTIONS (4)
  - Contusion [Unknown]
  - Exfoliative rash [Unknown]
  - Infusion site bruising [Unknown]
  - Erythema [Unknown]

NARRATIVE: CASE EVENT DATE: 201902
